FAERS Safety Report 12093166 (Version 2)
Quarter: 2016Q1

REPORT INFORMATION
  Report Type: Spontaneous
  Country: US (occurrence: US)
  Receive Date: 20160219
  Receipt Date: 20160308
  Transmission Date: 20160526
  Serious: Yes (Hospitalization)
  Sender: FDA-Public Use
  Company Number: US-PFIZER INC-2016009472

PATIENT
  Age: 73 Year
  Sex: Female
  Weight: 58.96 kg

DRUGS (6)
  1. TYLENOL WITH CODEINE [Suspect]
     Active Substance: ACETAMINOPHEN\CODEINE PHOSPHATE
     Indication: PAIN
     Dosage: UNK
  2. CALTRATE WITH VITAMIN D [Suspect]
     Active Substance: CALCIUM CARBONATE\CHOLECALCIFEROL
     Indication: MINERAL SUPPLEMENTATION
     Dosage: [CALCIUM CARBONATE 600MG]/[CHOLECALCIFEROL 800IU], 1 DF, 1X/DAY
     Route: 048
     Dates: start: 20151223
  3. CALTRATE WITH VITAMIN D [Suspect]
     Active Substance: CALCIUM CARBONATE\CHOLECALCIFEROL
     Dosage: [CALCIUM CARBONATE 600MG]/[CHOLECALCIFEROL 800IU], 1 DF, 1X/DAY
     Route: 048
     Dates: end: 20160116
  4. VITAMIN C [Concomitant]
     Active Substance: ASCORBIC ACID
     Indication: INFECTION PROPHYLAXIS
     Dosage: 500 MG, DAILY
     Dates: start: 20151222
  5. IBUPROFEN. [Suspect]
     Active Substance: IBUPROFEN
     Indication: PAIN
     Dosage: 300MG OR 600 MG, AS NEEDED
  6. ECOTRIN [Concomitant]
     Active Substance: ASPIRIN
     Indication: THROMBOSIS
     Dosage: 325 MG, 1X/DAY, PILL
     Dates: start: 20151223, end: 201602

REACTIONS (5)
  - Constipation [Recovering/Resolving]
  - Intentional product misuse [Unknown]
  - Product difficult to swallow [Recovered/Resolved]
  - Dysphagia [Recovered/Resolved]
  - Abdominal pain [Not Recovered/Not Resolved]

NARRATIVE: CASE EVENT DATE: 20151223
